FAERS Safety Report 4534099-9 (Version None)
Quarter: 2004Q4

REPORT INFORMATION
  Report Type: 
  Country: None (occurrence: None)
  Receive Date: 20041221
  Receipt Date: 20041221
  Transmission Date: 20050328
  Serious: Yes (Other)
  Sender: FDA-Public Use
  Company Number: None

PATIENT
  Age: 83 Year
  Sex: Male
  Weight: 118.4 kg

DRUGS (2)
  1. MELOXICAM [Suspect]
  2. GLYBURIDE 2.5MG/METFORMIN HCL  500MG [Concomitant]

REACTIONS (1)
  - DIZZINESS [None]
